FAERS Safety Report 18331504 (Version 1)
Quarter: 2020Q3

REPORT INFORMATION
  Report Type: Other
  Country: IT (occurrence: IT)
  Receive Date: 20200930
  Receipt Date: 20200930
  Transmission Date: 20201103
  Serious: Yes (Death)
  Sender: FDA-Public Use
  Company Number: IT-DEXPHARM-20200881

PATIENT
  Age: 58 Year
  Sex: Male

DRUGS (10)
  1. DEXAMETHASONE. [Suspect]
     Active Substance: DEXAMETHASONE
  2. RITUXIMAB. [Suspect]
     Active Substance: RITUXIMAB
  3. FLUCONAZOLE. [Suspect]
     Active Substance: FLUCONAZOLE
  4. CICLOSPORIN [Suspect]
     Active Substance: CYCLOSPORINE
     Indication: PROPHYLAXIS AGAINST GRAFT VERSUS HOST DISEASE
  5. ETOPOSIDE. [Suspect]
     Active Substance: ETOPOSIDE
  6. DEXAMETHASONE. [Suspect]
     Active Substance: DEXAMETHASONE
  7. TACROLIMUS. [Suspect]
     Active Substance: TACROLIMUS
  8. DEXAMETHASONE. [Suspect]
     Active Substance: DEXAMETHASONE
  9. DEXAMETHASONE. [Suspect]
     Active Substance: DEXAMETHASONE
  10. EVEROLIMUS. [Suspect]
     Active Substance: EVEROLIMUS

REACTIONS (5)
  - Drug ineffective [Unknown]
  - Mucosal inflammation [Unknown]
  - Haemophagocytic lymphohistiocytosis [Fatal]
  - Drug interaction [Unknown]
  - Product use in unapproved indication [Unknown]
